FAERS Safety Report 12854199 (Version 1)
Quarter: 2016Q4

REPORT INFORMATION
  Report Type: Spontaneous
  Country: US (occurrence: US)
  Receive Date: 20161017
  Receipt Date: 20161017
  Transmission Date: 20170207
  Serious: No
  Sender: FDA-Public Use
  Company Number: US-BIOCOMPATIBLES UK LTD-BTG00839

PATIENT

DRUGS (4)
  1. CROFAB [Suspect]
     Active Substance: CROTALIDAE POLYVALENT IMMUNE FAB (OVINE)
     Dosage: 6 DF, UNK
     Route: 051
     Dates: start: 20160724, end: 20160724
  2. CROFAB [Suspect]
     Active Substance: CROTALIDAE POLYVALENT IMMUNE FAB (OVINE)
     Indication: SNAKE BITE
     Dosage: 6 DF, UNK
     Dates: start: 20160724, end: 20160724
  3. CROFAB [Suspect]
     Active Substance: CROTALIDAE POLYVALENT IMMUNE FAB (OVINE)
     Dosage: 2 DF, UNK
     Route: 051
     Dates: start: 20160725, end: 20160725
  4. CROFAB [Suspect]
     Active Substance: CROTALIDAE POLYVALENT IMMUNE FAB (OVINE)
     Dosage: 2 DF, UNK
     Dates: start: 20160725, end: 20160725

REACTIONS (2)
  - Swelling [Unknown]
  - Coagulopathy [Recovered/Resolved]

NARRATIVE: CASE EVENT DATE: 201607
